FAERS Safety Report 7909673 (Version 5)
Quarter: 2013Q2

REPORT INFORMATION
  Report Type: Spontaneous
  Country: US (occurrence: US)
  Receive Date: 20110421
  Receipt Date: 20130401
  Transmission Date: 20140414
  Serious: No
  Sender: FDA-Public Use
  Company Number: US-ASTRAZENECA-2011SE01590

PATIENT
  Age: 50 Year
  Sex: Female

DRUGS (6)
  1. TOPROL XL [Suspect]
     Indication: HYPERTENSION
     Route: 048
     Dates: start: 2008
  2. TOPROL XL [Suspect]
     Indication: HYPERTENSION
     Route: 048
  3. TOPROL XL [Suspect]
     Indication: HYPERTENSION
     Dosage: GENERIC
     Route: 048
  4. TOPROL XL [Suspect]
     Indication: HYPERTENSION
     Route: 048
  5. TOPROL XL [Suspect]
     Indication: HYPERTENSION
     Route: 048
  6. METOPROLOL [Suspect]
     Indication: HYPERTENSION
     Route: 048

REACTIONS (8)
  - Impaired work ability [Unknown]
  - Hypertension [Unknown]
  - Malaise [Unknown]
  - Drug effect increased [Unknown]
  - Dizziness [Unknown]
  - Circumstance or information capable of leading to medication error [Unknown]
  - Drug dose omission [Unknown]
  - Drug ineffective [Unknown]
